FAERS Safety Report 25324142 (Version 1)
Quarter: 2025Q2

REPORT INFORMATION
  Report Type: Spontaneous
  Country: US (occurrence: US)
  Receive Date: 20250516
  Receipt Date: 20250516
  Transmission Date: 20250717
  Serious: Yes (Hospitalization, Other)
  Sender: ABBVIE
  Company Number: US-ABBVIE-6278363

PATIENT
  Sex: Male

DRUGS (1)
  1. RINVOQ [Suspect]
     Active Substance: UPADACITINIB
     Indication: Maternal exposure timing unspecified
     Route: 064

REACTIONS (4)
  - Blood glucose decreased [Recovered/Resolved]
  - Foetal exposure during pregnancy [Unknown]
  - Jaundice [Recovered/Resolved]
  - Tethered oral tissue [Recovered/Resolved]

NARRATIVE: CASE EVENT DATE: 20240831
